FAERS Safety Report 10908383 (Version 1)
Quarter: 2015Q1

REPORT INFORMATION
  Report Type: Spontaneous
  Country: US (occurrence: US)
  Receive Date: 20150312
  Receipt Date: 20150312
  Transmission Date: 20150721
  Serious: No
  Sender: FDA-Public Use
  Company Number: US-ELI_LILLY_AND_COMPANY-US201502006370

PATIENT
  Sex: Female

DRUGS (1)
  1. TRULICITY [Suspect]
     Active Substance: DULAGLUTIDE
     Indication: WEIGHT DECREASED
     Dosage: UNK, UNKNOWN
     Route: 065

REACTIONS (4)
  - Abdominal pain [Unknown]
  - Off label use [Unknown]
  - Injection site reaction [Unknown]
  - Nausea [Unknown]
